FAERS Safety Report 9003108 (Version 2)
Quarter: 2013Q1

REPORT INFORMATION
  Report Type: Report from Study
  Country: IN (occurrence: IN)
  Receive Date: 20130108
  Receipt Date: 20130123
  Transmission Date: 20140127
  Serious: Yes (Death)
  Sender: FDA-Public Use
  Company Number: IN-ROCHE-1177210

PATIENT
  Age: 63 Year
  Sex: Male
  Weight: 38 kg

DRUGS (5)
  1. METHOXY POLYETHYLENE GLYCOL-EPOETIN BETA [Suspect]
     Indication: PRODUCT USED FOR UNKNOWN INDICATION
     Route: 065
  2. LOTENSIN [Concomitant]
     Route: 048
     Dates: start: 20120906, end: 20121218
  3. SHELCAL [Concomitant]
     Route: 048
     Dates: start: 20120906, end: 20121218
  4. LASIX [Concomitant]
     Indication: HYPERTENSION
     Route: 048
     Dates: start: 20120906, end: 20121218
  5. RAZO [Concomitant]
     Route: 048
     Dates: start: 20120906, end: 20121218

REACTIONS (2)
  - Asthenia [Fatal]
  - Dyspnoea [Fatal]
